FAERS Safety Report 17279843 (Version 8)
Quarter: 2020Q2

REPORT INFORMATION
  Report Type: Report from Study
  Country: None (occurrence: NL)
  Receive Date: 20200116
  Receipt Date: 20200616
  Transmission Date: 20200713
  Serious: Yes (Hospitalization, Other)
  Sender: FDA-Public Use
  Company Number: NL-ABBVIE-19K-114-3004726-00

PATIENT
  Age: 73 Year
  Sex: Male

DRUGS (9)
  1. DUODOPA [Suspect]
     Active Substance: CARBIDOPA\LEVODOPA
     Dosage: MD 13.5 CD 4.1 ED 2.0
     Route: 050
  2. DUODOPA [Suspect]
     Active Substance: CARBIDOPA\LEVODOPA
     Dosage: MD: 4.5, CD: 3.8, ED: 2.0
     Route: 050
  3. DUODOPA [Suspect]
     Active Substance: CARBIDOPA\LEVODOPA
     Dosage: MD: 4.5, CD: 3.3, ED: 2
     Route: 050
  4. DUODOPA [Suspect]
     Active Substance: CARBIDOPA\LEVODOPA
     Indication: PARKINSON^S DISEASE
     Dosage: MD: 10.5 CD: 4.4 ED: 2.0
     Route: 050
     Dates: start: 20191105, end: 2019
  5. DUODOPA [Suspect]
     Active Substance: CARBIDOPA\LEVODOPA
     Dosage: MD: 4.5, CD: 3.2, ED: 2
     Route: 050
  6. RIVASTIGMINE. [Concomitant]
     Active Substance: RIVASTIGMINE
     Indication: PARKINSON^S DISEASE
  7. DUODOPA [Suspect]
     Active Substance: CARBIDOPA\LEVODOPA
     Dosage: ADJUSTED CD FROM 4.4 TO 4.1
     Route: 050
     Dates: start: 2019
  8. DUODOPA [Suspect]
     Active Substance: CARBIDOPA\LEVODOPA
     Dosage: DOSAGE: MD: 4.5; CD: 3.1; ED: 3.0
     Route: 050
  9. MADOPAR HBS [Concomitant]
     Active Substance: BENSERAZIDE HYDROCHLORIDE\LEVODOPA
     Indication: PARKINSON^S DISEASE

REACTIONS (20)
  - Cognitive disorder [Not Recovered/Not Resolved]
  - Abnormal behaviour [Not Recovered/Not Resolved]
  - Memory impairment [Not Recovered/Not Resolved]
  - Suicide attempt [Recovering/Resolving]
  - Depression [Unknown]
  - Speech disorder [Not Recovered/Not Resolved]
  - Device issue [Unknown]
  - Hyperkinesia [Not Recovered/Not Resolved]
  - Confusional state [Unknown]
  - Anger [Not Recovered/Not Resolved]
  - Fall [Not Recovered/Not Resolved]
  - Dementia [Not Recovered/Not Resolved]
  - On and off phenomenon [Not Recovered/Not Resolved]
  - Initial insomnia [Recovered/Resolved]
  - Obsessive-compulsive personality disorder [Recovered/Resolved]
  - Restlessness [Not Recovered/Not Resolved]
  - Gait disturbance [Not Recovered/Not Resolved]
  - Fall [Recovered/Resolved]
  - Bradykinesia [Not Recovered/Not Resolved]
  - Dyskinesia [Recovered/Resolved]

NARRATIVE: CASE EVENT DATE: 2019
